FAERS Safety Report 16778841 (Version 1)
Quarter: 2019Q3

REPORT INFORMATION
  Report Type: Spontaneous
  Country: FR (occurrence: FR)
  Receive Date: 20190906
  Receipt Date: 20190906
  Transmission Date: 20191005
  Serious: Yes (Hospitalization)
  Sender: FDA-Public Use
  Company Number: FR-ZYDUS-040294

PATIENT
  Age: 85 Year
  Sex: Female
  Weight: 72 kg

DRUGS (6)
  1. AMIODARONE [Suspect]
     Active Substance: AMIODARONE
     Indication: ARRHYTHMIA SUPRAVENTRICULAR
     Route: 048
     Dates: end: 20190729
  2. ELIQUIS [Suspect]
     Active Substance: APIXABAN
     Indication: ARRHYTHMIA SUPRAVENTRICULAR
     Route: 048
     Dates: end: 20190715
  3. HYDROCHLOROTHIAZIDE. [Suspect]
     Active Substance: HYDROCHLOROTHIAZIDE
     Indication: HYPERTENSION
     Route: 048
     Dates: end: 20190729
  4. NEBIVOLOL. [Suspect]
     Active Substance: NEBIVOLOL
     Indication: ARRHYTHMIA SUPRAVENTRICULAR
     Route: 048
     Dates: end: 20190729
  5. IRBESARTAN. [Suspect]
     Active Substance: IRBESARTAN
     Indication: HYPERTENSION
     Route: 048
     Dates: end: 20190729
  6. FENOFIBRATE. [Suspect]
     Active Substance: FENOFIBRATE
     Indication: DYSLIPIDAEMIA
     Route: 048
     Dates: end: 20190729

REACTIONS (1)
  - Rectal haemorrhage [Recovered/Resolved]

NARRATIVE: CASE EVENT DATE: 20190708
